FAERS Safety Report 10475776 (Version 2)
Quarter: 2014Q3

REPORT INFORMATION
  Report Type: Spontaneous
  Country: US (occurrence: US)
  Receive Date: 20140925
  Receipt Date: 20140925
  Transmission Date: 20150326
  Serious: No
  Sender: FDA-Public Use
  Company Number: US-GLAXOSMITHKLINE-A0687691A

PATIENT
  Age: 73 Year
  Sex: Male

DRUGS (7)
  1. VERAMYST [Concomitant]
     Active Substance: FLUTICASONE FUROATE
  2. UNKNOWN MEDICATION [Concomitant]
     Active Substance: UNSPECIFIED INGREDIENT
  3. COREG [Suspect]
     Active Substance: CARVEDILOL
     Indication: HEART RATE IRREGULAR
     Dosage: 25MG TWICE PER DAY
     Route: 048
     Dates: start: 2005
  4. ADVAIR HFA [Suspect]
     Active Substance: FLUTICASONE PROPIONATE\SALMETEROL XINAFOATE
     Indication: PRODUCT USED FOR UNKNOWN INDICATION
     Route: 065
     Dates: start: 20110415
  5. ALLERGY SHOT [Concomitant]
     Active Substance: UNSPECIFIED INGREDIENT
  6. ALTACE [Concomitant]
     Active Substance: RAMIPRIL
  7. VITORIN [Concomitant]

REACTIONS (2)
  - Dizziness [Unknown]
  - Expired product administered [Unknown]
